FAERS Safety Report 7518186-9 (Version None)
Quarter: 2011Q2

REPORT INFORMATION
  Report Type: 
  Country: None (occurrence: None)
  Receive Date: 20110602
  Receipt Date: 20110519
  Transmission Date: 20111010
  Serious: Yes (Death)
  Sender: FDA-Public Use
  Company Number: US-CELGENEUS-163-21880-11050445

PATIENT
  Sex: Female
  Weight: 75.818 kg

DRUGS (2)
  1. REVLIMID [Suspect]
  2. REVLIMID [Suspect]
     Dosage: 10 MILLIGRAM
     Route: 048
     Dates: start: 20110401

REACTIONS (1)
  - MYELODYSPLASTIC SYNDROME [None]
